FAERS Safety Report 16021357 (Version 2)
Quarter: 2019Q2

REPORT INFORMATION
  Report Type: Spontaneous
  Country: US (occurrence: US)
  Receive Date: 20190301
  Receipt Date: 20190508
  Transmission Date: 20190711
  Serious: Yes (Other)
  Sender: FDA-Public Use
  Company Number: US-009507513-1902USA009145

PATIENT
  Age: 70 Year
  Sex: Female

DRUGS (3)
  1. TEMODAR [Suspect]
     Active Substance: TEMOZOLOMIDE
     Indication: POST TRANSPLANT LYMPHOPROLIFERATIVE DISORDER
     Dosage: UNK, CYCLICAL
     Route: 048
  2. RITUXIMAB. [Suspect]
     Active Substance: RITUXIMAB
     Indication: POST TRANSPLANT LYMPHOPROLIFERATIVE DISORDER
     Dosage: 0.375 MG/M2 FOR 1 DAY
  3. TEMODAR [Suspect]
     Active Substance: TEMOZOLOMIDE
     Dosage: ALONE FOR 5 CONSECUTIVE DAYS EVERY 28 DAYS FOR 8 CYCLES
     Route: 048

REACTIONS (3)
  - Off label use [Unknown]
  - Bacteraemia [Unknown]
  - Urinary tract infection [Unknown]
